FAERS Safety Report 10365965 (Version 1)
Quarter: 2014Q3

REPORT INFORMATION
  Report Type: Spontaneous
  Country: BE (occurrence: None)
  Receive Date: 20140804
  Receipt Date: 20140804
  Transmission Date: 20150326
  Serious: Yes (Other)
  Sender: FDA-Public Use
  Company Number: 2014BE00978

PATIENT
  Sex: Female

DRUGS (3)
  1. TREBANANIB [Suspect]
     Active Substance: TREBANANIB
     Dosage: 15 MG/KG, WEEKLY, INTRAVENOUS
     Route: 042
  2. PACLITAXEL (PACLITAXEL) [Suspect]
     Active Substance: PACLITAXEL
     Indication: OVARIAN CANCER
     Dosage: 175 MG/M2, ONCE EVERY 3 WEEKS, INTRAVENOUS
  3. CARBOPLATIN. [Suspect]
     Active Substance: CARBOPLATIN
     Indication: OVARIAN CANCER
     Dosage: 6 MG/ML, AUC6 Q3W, INTRAVENOUS

REACTIONS (1)
  - Antibody test positive [None]
